FAERS Safety Report 5776155-3 (Version None)
Quarter: 2008Q2

REPORT INFORMATION
  Report Type: 
  Country: None (occurrence: None)
  Receive Date: 20080613
  Receipt Date: 20080606
  Transmission Date: 20081010
  Serious: No
  Sender: FDA-Public Use
  Company Number: 2008JP001925

PATIENT
  Age: 10 Year
  Sex: Male

DRUGS (1)
  1. PROTOPIC [Suspect]
     Indication: DERMATITIS ATOPIC
     Dates: start: 20051215

REACTIONS (1)
  - SKIN PAPILLOMA [None]
